FAERS Safety Report 17037367 (Version 1)
Quarter: 2019Q4

REPORT INFORMATION
  Report Type: Spontaneous
  Country: US (occurrence: US)
  Receive Date: 20191016
  Receipt Date: 20191016
  Transmission Date: 20200122
  Serious: No
  Sender: FDA-Public Use
  Company Number: None

PATIENT
  Sex: Female

DRUGS (1)
  1. SIMPONI ARIA [Suspect]
     Active Substance: GOLIMUMAB
     Indication: RHEUMATOID ARTHRITIS
     Dosage: ?          OTHER FREQUENCY:Q 56 DAYS ;?
     Route: 042
     Dates: start: 20190513

REACTIONS (4)
  - Joint swelling [None]
  - Feeling hot [None]
  - Peripheral swelling [None]
  - Pruritus [None]
